FAERS Safety Report 9592650 (Version 1)
Quarter: 2013Q4

REPORT INFORMATION
  Report Type: Spontaneous
  Country: US (occurrence: None)
  Receive Date: 20131003
  Receipt Date: 20131003
  Transmission Date: 20140711
  Serious: Yes (Other)
  Sender: FDA-Public Use
  Company Number: None

PATIENT
  Age: 48 Year
  Sex: Female

DRUGS (1)
  1. ENBREL 50MG AMGEN [Suspect]
     Indication: PSORIATIC ARTHROPATHY
     Dates: start: 201308, end: 201308

REACTIONS (4)
  - Bacterial infection [None]
  - Hypersensitivity [None]
  - Oedema peripheral [None]
  - Rash [None]
